FAERS Safety Report 7082088-5 (Version None)
Quarter: 2010Q4

REPORT INFORMATION
  Report Type: 
  Country: None (occurrence: None)
  Receive Date: 20101103
  Receipt Date: 20101029
  Transmission Date: 20110411
  Serious: Yes (Other)
  Sender: FDA-Public Use
  Company Number: US-PFIZER INC-2010138525

PATIENT
  Age: 45 Year
  Sex: Male

DRUGS (1)
  1. CHANTIX [Suspect]
     Indication: SMOKING CESSATION THERAPY
     Dosage: UNK
     Dates: start: 20100401, end: 20100701

REACTIONS (6)
  - DELUSION [None]
  - HALLUCINATION [None]
  - MANIA [None]
  - MOOD SWINGS [None]
  - PARANOIA [None]
  - SUICIDAL IDEATION [None]
